FAERS Safety Report 19471421 (Version 1)
Quarter: 2021Q2

REPORT INFORMATION
  Report Type: Spontaneous
  Country: US (occurrence: US)
  Receive Date: 20210628
  Receipt Date: 20210628
  Transmission Date: 20210717
  Serious: No
  Sender: FDA-Public Use
  Company Number: US-TEVA-2021-US-1927179

PATIENT
  Age: 55 Year
  Sex: Female

DRUGS (1)
  1. TRAZODONE HYDROCHLORIDE TEVA [Suspect]
     Active Substance: TRAZODONE HYDROCHLORIDE
     Route: 065

REACTIONS (5)
  - Lethargy [Unknown]
  - Nausea [Unknown]
  - Insomnia [Unknown]
  - Illness [Unknown]
  - Asthenia [Unknown]
